FAERS Safety Report 5430883-8 (Version None)
Quarter: 2007Q3

REPORT INFORMATION
  Report Type: 
  Country: None (occurrence: None)
  Receive Date: 20070830
  Receipt Date: 20070105
  Transmission Date: 20080115
  Serious: No
  Sender: FDA-Public Use
  Company Number: A0634519A

PATIENT
  Age: 13 Year
  Sex: Male

DRUGS (2)
  1. WELLBUTRIN XL [Suspect]
     Dosage: 300MG PER DAY
     Route: 048
     Dates: end: 20061201
  2. LEXAPRO [Concomitant]

REACTIONS (7)
  - ANGER [None]
  - CRYING [None]
  - DEPRESSED MOOD [None]
  - EUPHORIC MOOD [None]
  - MOOD SWINGS [None]
  - PSYCHOMOTOR HYPERACTIVITY [None]
  - SCREAMING [None]
